FAERS Safety Report 21045846 (Version 2)
Quarter: 2022Q3

REPORT INFORMATION
  Report Type: Report from Study
  Country: JP (occurrence: JP)
  Receive Date: 20220706
  Receipt Date: 20220715
  Transmission Date: 20221027
  Serious: Yes (Hospitalization)
  Sender: FDA-Public Use
  Company Number: JP-CELLTRION INC.-2022JP010270

PATIENT

DRUGS (7)
  1. TRASTUZUMAB [Suspect]
     Active Substance: TRASTUZUMAB
     Indication: HER2 positive gastric cancer
     Dosage: 6 MILLIGRAM/KILOGRAM, 441.6 MILLIGRAM/BODY
     Route: 041
     Dates: start: 20220325, end: 20220513
  2. XELODA [Suspect]
     Active Substance: CAPECITABINE
     Indication: Gastric cancer
     Dosage: 3600 MILLIGRAM, QD
     Route: 048
     Dates: start: 20220325, end: 20220527
  3. OXALIPLATIN [Suspect]
     Active Substance: OXALIPLATIN
     Indication: Gastric cancer
     Dosage: 130 MILLIGRAM/M2, 240.37 MILLIGRAM/BODY
     Route: 041
     Dates: start: 20220325, end: 20220513
  4. PYRIDOXAL [Concomitant]
     Active Substance: PYRIDOXAL
     Indication: Neuralgia
     Dosage: UNK
     Dates: start: 20220325
  5. MIYA-BM [Concomitant]
     Active Substance: CLOSTRIDIUM BUTYRICUM SPORES STRAIN M-55
     Indication: Dysbiosis
     Dosage: UNK
     Dates: start: 20220513
  6. LANSOPRAZOLE [Concomitant]
     Active Substance: LANSOPRAZOLE
     Indication: Gastrooesophageal reflux disease
     Dosage: UNK
  7. POLAPREZINC [Concomitant]
     Active Substance: POLAPREZINC
     Indication: Gastrointestinal mucosal disorder
     Dosage: UNK
     Dates: start: 20220311

REACTIONS (5)
  - Malaise [Recovering/Resolving]
  - Decreased appetite [Unknown]
  - Gout [Unknown]
  - Headache [Unknown]
  - Underdose [Unknown]

NARRATIVE: CASE EVENT DATE: 20220325
